FAERS Safety Report 10192902 (Version 1)
Quarter: 2014Q2

REPORT INFORMATION
  Report Type: Report from Study
  Country: BR (occurrence: BR)
  Receive Date: 20140523
  Receipt Date: 20140523
  Transmission Date: 20141212
  Serious: Yes (Death)
  Sender: FDA-Public Use
  Company Number: BR-ABBVIE-14P-020-1239975-00

PATIENT
  Sex: Female

DRUGS (2)
  1. HUMIRA [Suspect]
     Indication: RHEUMATOID ARTHRITIS
     Route: 058
  2. UNSPECIFIED MEDICATION [Concomitant]
     Indication: PRODUCT USED FOR UNKNOWN INDICATION

REACTIONS (5)
  - Lung disorder [Fatal]
  - Cardiac disorder [Fatal]
  - Pulmonary oedema [Fatal]
  - Pneumonia [Fatal]
  - Malaise [Unknown]
